FAERS Safety Report 8117343-0 (Version None)
Quarter: 2012Q1

REPORT INFORMATION
  Report Type: 
  Country: None (occurrence: None)
  Receive Date: 20120206
  Receipt Date: 20120201
  Transmission Date: 20120608
  Serious: Yes (Life-Threatening, Other)
  Sender: FDA-Public Use
  Company Number: US-ASTRAZENECA-2011SE64985

PATIENT
  Age: 33 Year
  Sex: Female

DRUGS (1)
  1. SEROQUEL [Suspect]
     Route: 048

REACTIONS (6)
  - MENTAL DISORDER [None]
  - SUICIDAL IDEATION [None]
  - ANXIETY [None]
  - SUICIDE ATTEMPT [None]
  - DEPRESSION [None]
  - DRUG DOSE OMISSION [None]
